FAERS Safety Report 11065031 (Version 2)
Quarter: 2015Q2

REPORT INFORMATION
  Report Type: Spontaneous
  Country: US (occurrence: US)
  Receive Date: 20150424
  Receipt Date: 20150525
  Transmission Date: 20150821
  Serious: No
  Sender: FDA-Public Use
  Company Number: US-JNJFOC-20150121286

PATIENT
  Age: 42 Year
  Sex: Male
  Weight: 99.79 kg

DRUGS (1)
  1. TOPAMAX [Suspect]
     Active Substance: TOPIRAMATE
     Indication: NEURALGIA
     Route: 048
     Dates: end: 20150126

REACTIONS (10)
  - Confusional state [Not Recovered/Not Resolved]
  - Ocular discomfort [Not Recovered/Not Resolved]
  - Product use issue [Unknown]
  - Asthenopia [Not Recovered/Not Resolved]
  - Back pain [Not Recovered/Not Resolved]
  - Gastrointestinal disorder [Not Recovered/Not Resolved]
  - Infection [Unknown]
  - Acne [Not Recovered/Not Resolved]
  - Neuralgia [Not Recovered/Not Resolved]
  - Eye movement disorder [Not Recovered/Not Resolved]

NARRATIVE: CASE EVENT DATE: 201501
